FAERS Safety Report 8117725-7 (Version None)
Quarter: 2011Q4

REPORT INFORMATION
  Report Type: 
  Country: None (occurrence: None)
  Receive Date: 20111227
  Receipt Date: 20101228
  Transmission Date: 20120403
  Serious: Yes (Other)
  Sender: FDA-Public Use
  Company Number: PHHY2010US88994

PATIENT
  Age: 71 Year
  Sex: Female

DRUGS (1)
  1. FEMARA [Suspect]
     Indication: BREAST CANCER
     Dosage: 2.5 MG, QD, ORAL
     Route: 048
     Dates: start: 20090101

REACTIONS (3)
  - METASTASES TO BONE [None]
  - METASTASES TO LIVER [None]
  - NEOPLASM MALIGNANT [None]
